FAERS Safety Report 19176388 (Version 2)
Quarter: 2021Q3

REPORT INFORMATION
  Report Type: Spontaneous
  Country: JP (occurrence: JP)
  Receive Date: 20210423
  Receipt Date: 20210702
  Transmission Date: 20211014
  Serious: Yes (Death, Life-Threatening, Other)
  Sender: FDA-Public Use
  Company Number: JP-JAZZ-2021-JP-007355

PATIENT
  Age: 70 Year
  Sex: Male
  Weight: 60.2 kg

DRUGS (2)
  1. PREVYMIS [Suspect]
     Active Substance: LETERMOVIR
     Indication: PRODUCT USED FOR UNKNOWN INDICATION
     Dosage: UNK
     Dates: end: 20201107
  2. DEFITELIO [Suspect]
     Active Substance: DEFIBROTIDE SODIUM
     Indication: VENOOCCLUSIVE LIVER DISEASE
     Dosage: 25 MILLIGRAM/KILOGRAM, QD
     Route: 042
     Dates: start: 20201016, end: 20201106

REACTIONS (3)
  - Pulmonary alveolar haemorrhage [Not Recovered/Not Resolved]
  - Respiratory failure [Unknown]
  - Adult T-cell lymphoma/leukaemia [Fatal]

NARRATIVE: CASE EVENT DATE: 20201106
